FAERS Safety Report 15922893 (Version 1)
Quarter: 2019Q1

REPORT INFORMATION
  Report Type: Report from Study
  Country: US (occurrence: US)
  Receive Date: 20190206
  Receipt Date: 20190206
  Transmission Date: 20190417
  Serious: Yes (Other)
  Sender: FDA-Public Use
  Company Number: US-SA-2019SA022670

PATIENT
  Age: 61 Year
  Sex: Male

DRUGS (1)
  1. INSULIN GLARGINE [Suspect]
     Active Substance: INSULIN GLARGINE
     Indication: DIABETES MELLITUS
     Dosage: 35 U, QD
     Route: 058
     Dates: start: 2012

REACTIONS (9)
  - Pain [Recovered/Resolved]
  - Dysuria [Not Recovered/Not Resolved]
  - Back disorder [Recovered/Resolved]
  - Haemorrhage [Recovered/Resolved]
  - Blood glucose increased [Not Recovered/Not Resolved]
  - Urine flow decreased [Not Recovered/Not Resolved]
  - Device leakage [Unknown]
  - Prostatic specific antigen increased [Recovered/Resolved]
  - Product dose omission [Unknown]

NARRATIVE: CASE EVENT DATE: 2013
